FAERS Safety Report 6516421-7 (Version None)
Quarter: 2009Q4

REPORT INFORMATION
  Report Type: 
  Country: None (occurrence: None)
  Receive Date: 20091223
  Receipt Date: 20091214
  Transmission Date: 20100525
  Serious: Yes (Other)
  Sender: FDA-Public Use
  Company Number: B0616602A

PATIENT
  Age: 32 Year
  Sex: Female

DRUGS (5)
  1. RETROVIR [Suspect]
     Indication: HIV INFECTION
     Route: 048
  2. EPIVIR [Suspect]
     Indication: HIV INFECTION
     Route: 048
  3. AZIDOTHYMIDINE [Suspect]
     Indication: HIV INFECTION
     Route: 065
  4. KALETRA [Suspect]
     Indication: HIV INFECTION
     Route: 048
  5. PROPOFOL [Suspect]
     Route: 065

REACTIONS (2)
  - DIARRHOEA [None]
  - DRUG EXPOSURE DURING PREGNANCY [None]
